FAERS Safety Report 9995760 (Version 2)
Quarter: 2015Q1

REPORT INFORMATION
  Report Type: Spontaneous
  Country: US (occurrence: US)
  Receive Date: 20140311
  Receipt Date: 20150119
  Transmission Date: 20150721
  Serious: Yes (Hospitalization, Other)
  Sender: FDA-Public Use
  Company Number: US-NOVOPROD-402198

PATIENT
  Age: 66 Year
  Sex: Female
  Weight: 70.3 kg

DRUGS (3)
  1. VICTOZA [Suspect]
     Active Substance: LIRAGLUTIDE
     Indication: TYPE 1 DIABETES MELLITUS
     Dosage: UNK
     Route: 058
     Dates: start: 20100824, end: 20100924
  2. BYETTA [Suspect]
     Active Substance: EXENATIDE
     Indication: TYPE 1 DIABETES MELLITUS
     Dosage: UNK
     Route: 058
     Dates: start: 20081215, end: 20090115
  3. VICTOZA [Suspect]
     Active Substance: LIRAGLUTIDE
     Indication: OFF LABEL USE
     Dosage: UNK
     Route: 058
     Dates: start: 20120112, end: 20120311

REACTIONS (2)
  - Pancreatic carcinoma [Unknown]
  - Off label use [Unknown]

NARRATIVE: CASE EVENT DATE: 20100824
